FAERS Safety Report 8085109-6 (Version None)
Quarter: 2012Q1

REPORT INFORMATION
  Report Type: 
  Country: None (occurrence: None)
  Receive Date: 20120128
  Receipt Date: 20110330
  Transmission Date: 20120608
  Serious: No
  Sender: FDA-Public Use
  Company Number: US-ABBOTT-11P-163-0715655-00

PATIENT
  Sex: Female
  Weight: 54.48 kg

DRUGS (5)
  1. TRAMADOL HCL [Concomitant]
     Indication: PAIN
  2. SYNTHROID [Concomitant]
     Indication: HYPOTHYROIDISM
  3. NATURES PRECISE CREAM [Concomitant]
     Indication: HORMONE LEVEL ABNORMAL
     Route: 061
     Dates: start: 20110101
  4. HUMIRA [Suspect]
     Indication: RHEUMATOID ARTHRITIS
     Dates: start: 20091101
  5. PREDNISONE TAB [Concomitant]
     Indication: RHEUMATOID ARTHRITIS

REACTIONS (1)
  - MIGRAINE [None]
